FAERS Safety Report 8879921 (Version 1)
Quarter: 2012Q4

REPORT INFORMATION
  Report Type: 
  Country: IT (occurrence: IT)
  Receive Date: 20121101
  Receipt Date: 20121101
  Transmission Date: 20130627
  Serious: Yes (Hospitalization)
  Sender: FDA-Public Use
  Company Number: IT-WATSON-2012-18337

PATIENT
  Age: 80 Year
  Sex: Male

DRUGS (7)
  1. RAMIPRIL (UNKNOWN) [Suspect]
     Indication: HYPERTENSION
     Dosage: 2.5 mg, daily
     Route: 048
     Dates: start: 20120101, end: 20120930
  2. FUROSEMIDE (UNKNOWN) [Suspect]
     Indication: HYPERTENSION
     Dosage: 25 mg, daily
     Route: 048
     Dates: start: 20120101, end: 20120930
  3. BISOPROLOL HEMIFUMARATE [Suspect]
     Indication: HYPERTENSION
     Dosage: 1.25 mg, daily
     Route: 048
     Dates: start: 20120101, end: 20120930
  4. VENITRIN [Suspect]
     Indication: MYOCARDIAL ISCHAEMIA
     Dosage: 1 DOSAGE UNIT, daily, 15 patches
     Route: 062
     Dates: start: 20120101, end: 20120930
  5. ALDACTONE                          /00006201/ [Suspect]
     Indication: HYPERTENSION
     Dosage: 1 DF, daily
     Route: 048
     Dates: start: 20120101, end: 20120930
  6. COUMADIN                           /00014802/ [Concomitant]
     Indication: ATRIAL FIBRILLATION
     Dosage: 30 TABLETS
     Route: 065
  7. LANOXIN [Concomitant]
     Indication: ATRIAL FIBRILLATION
     Dosage: 1 blister 30 tablets
     Route: 065

REACTIONS (2)
  - Syncope [Recovered/Resolved]
  - Hypotension [Recovered/Resolved]
